FAERS Safety Report 6630150-0 (Version None)
Quarter: 2010Q1

REPORT INFORMATION
  Report Type: 
  Country: None (occurrence: None)
  Receive Date: 20100311
  Receipt Date: 20100301
  Transmission Date: 20100710
  Serious: Yes (Other)
  Sender: FDA-Public Use
  Company Number: US-JNJFOC-20100301301

PATIENT
  Age: 85 Year
  Sex: Female
  Weight: 65.77 kg

DRUGS (7)
  1. EXTRA STRENGTH TYLENOL [Suspect]
     Indication: CONSTIPATION
     Dosage: 1300 MG EVERY 4-6 HOURS FOR 3 DAYS
     Route: 048
  2. EXTRA STRENGTH TYLENOL [Suspect]
     Indication: NAUSEA
     Dosage: 1300 MG EVERY 4-6 HOURS FOR 3 DAYS
     Route: 048
  3. EXTRA STRENGTH TYLENOL [Suspect]
     Indication: HEADACHE
     Dosage: 1300 MG EVERY 4-6 HOURS FOR 3 DAYS
     Route: 048
  4. CARDIZEM [Concomitant]
     Indication: HYPERTENSION
  5. SYNTHROID [Concomitant]
     Indication: THYROID DISORDER
  6. BYSTOLIC [Concomitant]
     Indication: HYPERTENSION
  7. DIOVAN [Concomitant]
     Indication: HYPERTENSION

REACTIONS (3)
  - HYPERTENSION [None]
  - MALAISE [None]
  - PRODUCT QUALITY ISSUE [None]
